FAERS Safety Report 20496916 (Version 2)
Quarter: 2022Q1

REPORT INFORMATION
  Report Type: Spontaneous
  Country: US (occurrence: US)
  Receive Date: 20220221
  Receipt Date: 20220301
  Transmission Date: 20220423
  Serious: No
  Sender: FDA-Public Use
  Company Number: US-TAKEDA-2022TUS011724

PATIENT
  Sex: Male
  Weight: 91 kg

DRUGS (1)
  1. VYVANSE [Suspect]
     Active Substance: LISDEXAMFETAMINE DIMESYLATE
     Indication: Attention deficit hyperactivity disorder
     Dosage: 50 MILLIGRAM, ONCE DAILY
     Route: 065
     Dates: start: 20220113

REACTIONS (2)
  - Drug ineffective [Unknown]
  - Product physical issue [Unknown]
